FAERS Safety Report 15096484 (Version 1)
Quarter: 2018Q3

REPORT INFORMATION
  Report Type: Spontaneous
  Country: IT (occurrence: IT)
  Receive Date: 20180702
  Receipt Date: 20180702
  Transmission Date: 20181010
  Serious: Yes (Death, Other)
  Sender: FDA-Public Use
  Company Number: PHHY2018IT031559

PATIENT
  Age: 42 Year
  Sex: Female

DRUGS (3)
  1. PHENYTOIN. [Concomitant]
     Active Substance: PHENYTOIN
     Indication: ENCEPHALITIS
     Route: 065
  2. MANNITOL. [Concomitant]
     Active Substance: MANNITOL
     Indication: ENCEPHALITIS
     Route: 065
  3. METHYLPREDNISOLONE. [Suspect]
     Active Substance: METHYLPREDNISOLONE
     Indication: ENCEPHALITIS
     Route: 042

REACTIONS (7)
  - Haemorrhage [Fatal]
  - Condition aggravated [Unknown]
  - Lethargy [Unknown]
  - Acute haemorrhagic leukoencephalitis [Fatal]
  - Necrosis [Fatal]
  - Brain oedema [Unknown]
  - Product use in unapproved indication [Unknown]
